FAERS Safety Report 25538898 (Version 1)
Quarter: 2025Q3

REPORT INFORMATION
  Report Type: Spontaneous
  Country: US (occurrence: US)
  Receive Date: 20250710
  Receipt Date: 20250710
  Transmission Date: 20251021
  Serious: No
  Sender: SANOFI AVENTIS
  Company Number: US-SA-2025SA194817

PATIENT
  Age: 64 Year
  Sex: Female

DRUGS (7)
  1. DUPIXENT [Suspect]
     Active Substance: DUPILUMAB
     Indication: Asthma
     Dosage: 300 MG, QOW
     Route: 058
     Dates: start: 20250603
  2. ALBUTEROL [Concomitant]
     Active Substance: ALBUTEROL
  3. MELATONIN [Concomitant]
     Active Substance: MELATONIN
  4. BACTRIM [Concomitant]
     Active Substance: SULFAMETHOXAZOLE\TRIMETHOPRIM
  5. BUDESONIDE [Concomitant]
     Active Substance: BUDESONIDE
  6. ESCITALOPRAM [Concomitant]
     Active Substance: ESCITALOPRAM OXALATE
  7. LOSARTAN POTASSIUM [Concomitant]
     Active Substance: LOSARTAN POTASSIUM

REACTIONS (4)
  - Nausea [Unknown]
  - Fatigue [Unknown]
  - Lethargy [Unknown]
  - Depression [Unknown]

NARRATIVE: CASE EVENT DATE: 20250601
